FAERS Safety Report 23367298 (Version 1)
Quarter: 2024Q1

REPORT INFORMATION
  Report Type: Spontaneous
  Country: US (occurrence: None)
  Receive Date: 20240104
  Receipt Date: 20240104
  Transmission Date: 20240410
  Serious: Yes (Other)
  Sender: FDA-Public Use
  Company Number: None

PATIENT
  Sex: Female
  Weight: 87.3 kg

DRUGS (2)
  1. ARTESUNATE [Suspect]
     Active Substance: ARTESUNATE
     Indication: Malaria
     Dosage: FREQUENCY : DAILY;?
     Route: 042
     Dates: start: 20231226, end: 20240101
  2. ARTESUNATE [Concomitant]
     Active Substance: ARTESUNATE
     Dates: start: 20231226, end: 20240101

REACTIONS (1)
  - Haemolytic anaemia [None]
